FAERS Safety Report 13152134 (Version 1)
Quarter: 2017Q1

REPORT INFORMATION
  Report Type: Spontaneous
  Country: AU (occurrence: AU)
  Receive Date: 20170125
  Receipt Date: 20170125
  Transmission Date: 20170428
  Serious: Yes (Hospitalization)
  Sender: FDA-Public Use
  Company Number: AU-SA-2017SA010327

PATIENT
  Age: 49 Year
  Sex: Female

DRUGS (8)
  1. PALONOSETRON [Suspect]
     Active Substance: PALONOSETRON
     Route: 065
     Dates: start: 20160831, end: 20160831
  2. GLUCOSE INJECTION (GLUCOSE) [Suspect]
     Active Substance: DEXTROSE
     Dosage: GLUCOSE 12.5G/250ML INJECTION
     Route: 065
     Dates: start: 20160829, end: 20160829
  3. OXALIPLATIN. [Suspect]
     Active Substance: OXALIPLATIN
     Route: 042
     Dates: start: 20160831, end: 20160831
  4. GLUCOSE INJECTION (GLUCOSE) [Suspect]
     Active Substance: DEXTROSE
     Route: 065
     Dates: start: 20161031, end: 20161031
  5. CAPECITABINE. [Suspect]
     Active Substance: CAPECITABINE
     Route: 048
     Dates: start: 20160829, end: 20161031
  6. OXALIPLATIN. [Suspect]
     Active Substance: OXALIPLATIN
     Route: 042
     Dates: start: 20160829, end: 20160829
  7. DEXAMETHASONE. [Suspect]
     Active Substance: DEXAMETHASONE
     Route: 048
     Dates: start: 20160829, end: 20161031
  8. PALONOSETRON [Suspect]
     Active Substance: PALONOSETRON
     Route: 065
     Dates: start: 20160829, end: 20160829

REACTIONS (4)
  - Muscle twitching [Unknown]
  - Ataxia [Unknown]
  - Dystonia [Unknown]
  - Irritability [Unknown]

NARRATIVE: CASE EVENT DATE: 20161031
